FAERS Safety Report 17293794 (Version 1)
Quarter: 2020Q1

REPORT INFORMATION
  Report Type: Spontaneous
  Country: US (occurrence: US)
  Receive Date: 20200121
  Receipt Date: 20200121
  Transmission Date: 20200409
  Serious: No
  Sender: FDA-Public Use
  Company Number: US-SA-2020SA014683

PATIENT
  Age: 60 Year
  Sex: Male
  Weight: 83.91 kg

DRUGS (1)
  1. PLAVIX [Suspect]
     Active Substance: CLOPIDOGREL BISULFATE
     Indication: CEREBROVASCULAR ACCIDENT
     Dosage: UNK, UNK
     Route: 065

REACTIONS (2)
  - Heart rate increased [Unknown]
  - Cardiac flutter [Unknown]
